FAERS Safety Report 21727376 (Version 1)
Quarter: 2022Q4

REPORT INFORMATION
  Report Type: Spontaneous
  Country: MX (occurrence: MX)
  Receive Date: 20221214
  Receipt Date: 20221214
  Transmission Date: 20230113
  Serious: Yes (Other)
  Sender: FDA-Public Use
  Company Number: MX-LUNDBECK-DKLU3055896

PATIENT
  Age: 17 Year
  Sex: Female
  Weight: 37 kg

DRUGS (1)
  1. CLOBAZAM [Suspect]
     Active Substance: CLOBAZAM
     Indication: Epilepsy
     Route: 048
     Dates: start: 2016

REACTIONS (2)
  - Seizure [Unknown]
  - Product availability issue [Unknown]

NARRATIVE: CASE EVENT DATE: 20221208
